FAERS Safety Report 24402458 (Version 6)
Quarter: 2024Q4

REPORT INFORMATION
  Report Type: Spontaneous
  Country: CA (occurrence: CA)
  Receive Date: 20241007
  Receipt Date: 20241217
  Transmission Date: 20250114
  Serious: Yes (Other)
  Sender: CELLTRION
  Company Number: CA-PFIZER INC-202400265861

PATIENT

DRUGS (7)
  1. INFLECTRA [Suspect]
     Active Substance: INFLIXIMAB-DYYB
     Indication: Crohn^s disease
     Dosage: 5 MG/KG W 0,2,6 WKS THN EVERY 8WKS
     Route: 042
     Dates: start: 20240618
  2. INFLECTRA [Suspect]
     Active Substance: INFLIXIMAB-DYYB
     Dosage: 5 MG/KG W 0, 2, 6 WKS THEN EVERY 8 WKS
     Route: 042
     Dates: start: 20240730
  3. INFLECTRA [Suspect]
     Active Substance: INFLIXIMAB-DYYB
     Dosage: 5 MG/KG W 0, 2, 6 WEEKS THEN EVERY 8 WEEKS
     Route: 042
     Dates: start: 20240730
  4. INFLECTRA [Suspect]
     Active Substance: INFLIXIMAB-DYYB
     Dosage: 315 MG, AFTER 8 WEEKS AND 3 DAYS (PRESCRIBED EVERY 8 WKS) (5 MG/KG W 0, 2, 6 WKS THEN EVERY 8 WKS)
     Route: 042
     Dates: start: 20240927
  5. INFLECTRA [Suspect]
     Active Substance: INFLIXIMAB-DYYB
     Dosage: 600 MG, AFTER 5 WKS AND 6 DAYS (10 MG/KG, EVERY 8 WKS)
     Route: 042
     Dates: start: 20241107
  6. INFLECTRA [Suspect]
     Active Substance: INFLIXIMAB-DYYB
     Dosage: 600 MG, AFTER 5 WKS AND 6 DAYS (10 MG/KG, EVERY 8 WKS)
     Route: 042
     Dates: start: 20241107
  7. INFLECTRA [Suspect]
     Active Substance: INFLIXIMAB-DYYB
     Dosage: 590 MG, 4 WEEKS
     Route: 042
     Dates: start: 20241206

REACTIONS (17)
  - Haematochezia [Not Recovered/Not Resolved]
  - Drug specific antibody present [Unknown]
  - Drug level decreased [Unknown]
  - Arthralgia [Not Recovered/Not Resolved]
  - Anal fissure [Unknown]
  - Condition aggravated [Recovering/Resolving]
  - Cough [Not Recovered/Not Resolved]
  - Pruritus [Recovered/Resolved]
  - Skin plaque [Not Recovered/Not Resolved]
  - Back pain [Not Recovered/Not Resolved]
  - Palpitations [Recovered/Resolved]
  - Blood pressure increased [Recovered/Resolved]
  - Chills [Recovered/Resolved]
  - Off label use [Unknown]
  - Inappropriate schedule of product administration [Unknown]
  - Off label use [Unknown]
  - Intentional product use issue [Unknown]

NARRATIVE: CASE EVENT DATE: 20240101
